FAERS Safety Report 8039466-7 (Version None)
Quarter: 2012Q1

REPORT INFORMATION
  Report Type: 
  Country: None (occurrence: None)
  Receive Date: 20120111
  Receipt Date: 20111216
  Transmission Date: 20120608
  Serious: No
  Sender: FDA-Public Use
  Company Number: US-AMGEN-USASP2011067296

PATIENT
  Age: 53 Year
  Sex: Female

DRUGS (1)
  1. ENBREL [Suspect]
     Indication: RHEUMATOID ARTHRITIS
     Dosage: 50 MG, QWK
     Dates: start: 20110901, end: 20111201

REACTIONS (5)
  - INJECTION SITE REACTION [None]
  - INJECTION SITE DISCOLOURATION [None]
  - DRUG INEFFECTIVE [None]
  - INJECTION SITE RECALL REACTION [None]
  - INJECTION SITE WARMTH [None]
